FAERS Safety Report 13067851 (Version 1)
Quarter: 2016Q4

REPORT INFORMATION
  Report Type: Spontaneous
  Country: US (occurrence: US)
  Receive Date: 20161227
  Receipt Date: 20161227
  Transmission Date: 20170207
  Serious: Yes (Other)
  Sender: FDA-Public Use
  Company Number: None

PATIENT
  Age: 66 Year
  Sex: Female
  Weight: 81.72 kg

DRUGS (2)
  1. CEFTRIAXONE 2 GRAMS APOTEX [Suspect]
     Active Substance: CEFTRIAXONE
     Indication: ARTHRITIS BACTERIAL
     Dosage: 2 GRAMS Q24H IV
     Route: 042
     Dates: start: 20161209, end: 20161215
  2. VANCOMYCIN 1 GRAM FRESENIUS KABI USA [Suspect]
     Active Substance: VANCOMYCIN
     Indication: ARTHRITIS BACTERIAL
     Route: 042
     Dates: start: 20161209, end: 20161215

REACTIONS (1)
  - Rash [None]

NARRATIVE: CASE EVENT DATE: 20161215
